FAERS Safety Report 9787069 (Version 2)
Quarter: 2016Q3

REPORT INFORMATION
  Report Type: Report from Study
  Country: GB (occurrence: GB)
  Receive Date: 20131228
  Receipt Date: 20160915
  Transmission Date: 20161109
  Serious: Yes (Other)
  Sender: FDA-Public Use
  Company Number: GB-ROCHE-1326346

PATIENT
  Sex: Male

DRUGS (9)
  1. SENNA [Concomitant]
     Active Substance: SENNA LEAF\SENNOSIDES\SENNOSIDES A AND B
  2. NOVOMIX 30 [Concomitant]
     Active Substance: INSULIN ASPART
  3. OMEPRAZOLE. [Concomitant]
     Active Substance: OMEPRAZOLE
  4. SARGRAMOSTIM [Suspect]
     Active Substance: SARGRAMOSTIM
     Indication: PANCREATIC CARCINOMA METASTATIC
     Route: 023
  5. GEMCITABINE [Suspect]
     Active Substance: GEMCITABINE\GEMCITABINE HYDROCHLORIDE
     Indication: PANCREATIC CARCINOMA METASTATIC
     Route: 042
  6. ATENOLOL. [Concomitant]
     Active Substance: ATENOLOL
  7. NAPROXEN. [Concomitant]
     Active Substance: NAPROXEN
     Route: 065
  8. PARACETAMOL [Concomitant]
     Active Substance: ACETAMINOPHEN
  9. CAPECITABINE. [Suspect]
     Active Substance: CAPECITABINE
     Indication: PANCREATIC CARCINOMA METASTATIC
     Route: 065

REACTIONS (2)
  - Pyrexia [Recovered/Resolved]
  - Cholecystitis [Recovered/Resolved with Sequelae]

NARRATIVE: CASE EVENT DATE: 20120408
